FAERS Safety Report 24353423 (Version 1)
Quarter: 2024Q3

REPORT INFORMATION
  Report Type: Report from Study
  Country: RO (occurrence: RO)
  Receive Date: 20240923
  Receipt Date: 20240923
  Transmission Date: 20241017
  Serious: No
  Sender: ROCHE
  Company Number: RO-MYLANLABS-2023M1113294

PATIENT
  Age: 47 Year
  Sex: Female

DRUGS (3)
  1. TRASTUZUMAB [Suspect]
     Active Substance: TRASTUZUMAB
     Indication: Metastases to meninges
     Route: 037
  2. CAPECITABINE [Suspect]
     Active Substance: CAPECITABINE
     Indication: Metastases to meninges
     Route: 048
  3. LAPATINIB [Suspect]
     Active Substance: LAPATINIB
     Indication: Metastases to meninges
     Route: 065

REACTIONS (2)
  - Puncture site pain [Unknown]
  - Off label use [Unknown]
